FAERS Safety Report 25156102 (Version 1)
Quarter: 2025Q2

REPORT INFORMATION
  Report Type: Spontaneous
  Country: SI (occurrence: SI)
  Receive Date: 20250403
  Receipt Date: 20250403
  Transmission Date: 20250716
  Serious: Yes (Life-Threatening, Hospitalization, Disabling, Other)
  Sender: BOEHRINGER INGELHEIM
  Company Number: SI-BoehringerIngelheim-2025-BI-019126

PATIENT
  Age: 69 Year
  Sex: Male

DRUGS (21)
  1. JARDIANCE [Suspect]
     Active Substance: EMPAGLIFLOZIN
     Indication: Diabetes mellitus
  2. GLIQUIDONE [Suspect]
     Active Substance: GLIQUIDONE
     Indication: Diabetes mellitus
  3. ATORVASTATIN CALCIUM [Concomitant]
     Active Substance: ATORVASTATIN CALCIUM
     Indication: Product used for unknown indication
  4. METFORMIN [Concomitant]
     Active Substance: METFORMIN HYDROCHLORIDE
     Indication: Diabetes mellitus
     Dates: start: 2022
  5. LYRICA [Concomitant]
     Active Substance: PREGABALIN
     Indication: Product used for unknown indication
  6. perindopril/ indapamide/ amlodipine [Concomitant]
     Indication: Hypertension
  7. SPIRONOLACTONE [Concomitant]
     Active Substance: SPIRONOLACTONE
     Indication: Product used for unknown indication
  8. PERINDOPRIL [Concomitant]
     Active Substance: PERINDOPRIL
     Indication: Product used for unknown indication
  9. TRIMETAZIDINE [Concomitant]
     Active Substance: TRIMETAZIDINE
     Indication: Product used for unknown indication
  10. ROSUVASTATIN [Concomitant]
     Active Substance: ROSUVASTATIN
     Indication: Product used for unknown indication
  11. TICAGRELOR [Concomitant]
     Active Substance: TICAGRELOR
     Indication: Product used for unknown indication
  12. FUROSEMIDE [Concomitant]
     Active Substance: FUROSEMIDE
     Indication: Product used for unknown indication
  13. BISOPROLOL [Concomitant]
     Active Substance: BISOPROLOL
     Indication: Product used for unknown indication
  14. METAMIZOLE [Concomitant]
     Active Substance: METAMIZOLE
     Indication: Product used for unknown indication
  15. ACETAMINOPHEN [Concomitant]
     Active Substance: ACETAMINOPHEN
     Indication: Product used for unknown indication
  16. ASPIRIN [Concomitant]
     Active Substance: ASPIRIN
     Indication: Product used for unknown indication
  17. PANTOPRAZOLE [Concomitant]
     Active Substance: PANTOPRAZOLE
     Indication: Product used for unknown indication
  18. THIOCTIC ACID [Concomitant]
     Active Substance: THIOCTIC ACID
     Indication: Product used for unknown indication
  19. FOLIC ACID [Concomitant]
     Active Substance: FOLIC ACID
     Indication: Product used for unknown indication
  20. VITAMIN B COMPLEX [Concomitant]
     Active Substance: CYANOCOBALAMIN\DEXPANTHENOL\NIACINAMIDE\PYRIDOXINE HYDROCHLORIDE\RIBOFLAVIN 5^-PHOSPHATE SODIUM\THIA
     Indication: Product used for unknown indication
  21. VITAMIN D3 [Concomitant]
     Active Substance: CHOLECALCIFEROL
     Indication: Product used for unknown indication

REACTIONS (24)
  - Acute myocardial infarction [Unknown]
  - Cellulitis [Not Recovered/Not Resolved]
  - Gangrene [Not Recovered/Not Resolved]
  - Gangrene [Unknown]
  - Disease progression [Unknown]
  - Cardiac failure [Unknown]
  - Gangrene [Unknown]
  - Blood creatinine increased [Recovered/Resolved]
  - Acute kidney injury [Recovered/Resolved]
  - Cardiac failure [Unknown]
  - Blood glucose increased [Unknown]
  - Glomerular filtration rate decreased [Not Recovered/Not Resolved]
  - Hypotension [Recovered/Resolved]
  - Osteoarthritis [Unknown]
  - Osteoarthritis [Unknown]
  - Sciatica [Unknown]
  - Cervicobrachial syndrome [Unknown]
  - Fatigue [Recovered/Resolved]
  - General physical health deterioration [Recovered/Resolved]
  - Vomiting [Unknown]
  - Blood creatinine increased [Recovered/Resolved]
  - Glomerular filtration rate decreased [Recovered/Resolved]
  - Mental impairment [Unknown]
  - Blood glucose increased [Unknown]

NARRATIVE: CASE EVENT DATE: 20220601
